FAERS Safety Report 14617285 (Version 1)
Quarter: 2018Q1

REPORT INFORMATION
  Report Type: Spontaneous
  Country: CN (occurrence: CN)
  Receive Date: 20180309
  Receipt Date: 20180309
  Transmission Date: 20180509
  Serious: Yes (Other)
  Sender: FDA-Public Use
  Company Number: CN-BAYER-2018-044575

PATIENT
  Age: 72 Year
  Sex: Male
  Weight: 60 kg

DRUGS (2)
  1. BAYASPIRIN 100 MG [Suspect]
     Active Substance: ASPIRIN
     Indication: AZOTAEMIA
     Dosage: 100 MG, QD
     Route: 048
     Dates: start: 20151029, end: 20171229
  2. CLEXANE [Suspect]
     Active Substance: ENOXAPARIN SODIUM
     Indication: AZOTAEMIA
     Dosage: 40 MG, QD
     Route: 041
     Dates: start: 20171221, end: 20171227

REACTIONS (1)
  - Platelet count decreased [Recovering/Resolving]

NARRATIVE: CASE EVENT DATE: 20171227
